FAERS Safety Report 10963379 (Version 2)
Quarter: 2015Q1

REPORT INFORMATION
  Report Type: Spontaneous
  Country: US (occurrence: None)
  Receive Date: 20150226
  Receipt Date: 20150226
  Transmission Date: 20150721
  Serious: Yes (Other)
  Sender: FDA-Public Use
  Company Number: TPA2012A03028

PATIENT
  Age: 59 Year
  Sex: Male

DRUGS (3)
  1. HUMALOG [Concomitant]
     Active Substance: INSULIN LISPRO
  2. ACTOS [Suspect]
     Active Substance: PIOGLITAZONE HYDROCHLORIDE
     Indication: TYPE 2 DIABETES MELLITUS
     Dates: start: 200412, end: 200702
  3. METFORMIN [Concomitant]
     Active Substance: METFORMIN HYDROCHLORIDE

REACTIONS (13)
  - Bladder cancer [None]
  - Sensory loss [None]
  - Insomnia [None]
  - Cellulitis [None]
  - Obstructive uropathy [None]
  - Nephrolithiasis [None]
  - Erectile dysfunction [None]
  - Pain [None]
  - Nerve injury [None]
  - Haematuria [None]
  - Weight bearing difficulty [None]
  - Deep vein thrombosis [None]
  - Poor peripheral circulation [None]

NARRATIVE: CASE EVENT DATE: 2006
